FAERS Safety Report 8267269-7 (Version None)
Quarter: 2012Q2

REPORT INFORMATION
  Report Type: 
  Country: None (occurrence: None)
  Receive Date: 20120409
  Receipt Date: 20120403
  Transmission Date: 20120825
  Serious: Yes (Other)
  Sender: FDA-Public Use
  Company Number: DE-JNJFOC-20111012318

PATIENT
  Sex: Male

DRUGS (10)
  1. CLADRIBINE [Suspect]
     Dosage: SECOND CYCLE
     Route: 058
     Dates: start: 20100521
  2. ASPIRIN [Concomitant]
     Route: 065
  3. CLADRIBINE [Suspect]
     Dosage: FOR 5 DAYS (ONE CYCLE) FIRST CYCLE
     Route: 058
     Dates: start: 20100416
  4. METOPROLOL TARTRATE [Concomitant]
     Route: 065
  5. TORSEMIDE [Concomitant]
     Route: 065
  6. SIMVASTATIN [Concomitant]
     Route: 065
  7. ACITRETIN [Suspect]
     Indication: MYCOSIS FUNGOIDES
     Route: 065
  8. RADIATION THERAPY NOS [Suspect]
     Indication: MYCOSIS FUNGOIDES
     Route: 065
  9. CLADRIBINE [Suspect]
     Indication: MYCOSIS FUNGOIDES
     Dosage: THIRD CYCLE
     Route: 058
     Dates: start: 20100705, end: 20100706
  10. HYDROCHLOROTHIAZIDE [Concomitant]
     Route: 065

REACTIONS (3)
  - ANAEMIA MACROCYTIC [None]
  - MYCOSIS FUNGOIDES [None]
  - OEDEMA PERIPHERAL [None]
